FAERS Safety Report 17736943 (Version 1)
Quarter: 2020Q2

REPORT INFORMATION
  Report Type: Report from Study
  Country: FR (occurrence: FR)
  Receive Date: 20200502
  Receipt Date: 20200502
  Transmission Date: 20200714
  Serious: Yes (Hospitalization)
  Sender: FDA-Public Use
  Company Number: FR-ROCHE-2548197

PATIENT
  Age: 72 Year
  Sex: Female
  Weight: 95 kg

DRUGS (2)
  1. RITUXIMAB. [Suspect]
     Active Substance: RITUXIMAB
     Indication: MANTLE CELL LYMPHOMA
     Dosage: DATE OF MOST RECENT DOSE OF RITUXIMAB PRIOR TO ONSET OF SAE ON 15/JAN/2020
     Route: 058
     Dates: start: 20191120
  2. LENALIDOMIDE [Suspect]
     Active Substance: LENALIDOMIDE
     Indication: MANTLE CELL LYMPHOMA
     Dosage: DATE OF MOST RECENT DOSE OF LENALIDOMIDE PRIOR TO ONSET OF SAE ON 04/FEB/2020
     Route: 048
     Dates: start: 20191121

REACTIONS (2)
  - Ovarian cyst [Recovered/Resolved]
  - Ovarian adenoma [Unknown]

NARRATIVE: CASE EVENT DATE: 20191128
